FAERS Safety Report 9335217 (Version 2)
Quarter: 2013Q3

REPORT INFORMATION
  Report Type: Spontaneous
  Country: JP (occurrence: JP)
  Receive Date: 20130606
  Receipt Date: 20130808
  Transmission Date: 20140515
  Serious: Yes (Death, Other)
  Sender: FDA-Public Use
  Company Number: JP-GLAXOSMITHKLINE-B0897543A

PATIENT
  Age: 62 Year
  Sex: Female
  Weight: 32 kg

DRUGS (2)
  1. HYCAMTIN [Suspect]
     Indication: OVARIAN EPITHELIAL CANCER RECURRENT
     Dosage: 1MGM2 PER DAY
     Route: 042
     Dates: start: 20120110, end: 20120211
  2. CEFAZOLIN SODIUM [Concomitant]
     Indication: ANTIBIOTIC THERAPY
     Dosage: 1G PER DAY
     Dates: start: 20120120, end: 20120120

REACTIONS (11)
  - Ovarian epithelial cancer recurrent [Fatal]
  - Nausea [Recovering/Resolving]
  - Decreased appetite [Recovering/Resolving]
  - Fatigue [Recovering/Resolving]
  - White blood cell count decreased [Recovered/Resolved]
  - Neutrophil count decreased [Recovered/Resolved]
  - Red blood cell count decreased [Not Recovered/Not Resolved]
  - Anaemia [Not Recovered/Not Resolved]
  - Platelet count decreased [Not Recovered/Not Resolved]
  - Abdominal distension [Recovering/Resolving]
  - Pyrexia [Recovered/Resolved]
